FAERS Safety Report 5825382-5 (Version None)
Quarter: 2008Q3

REPORT INFORMATION
  Report Type: 
  Country: None (occurrence: None)
  Receive Date: 20080729
  Receipt Date: 20080714
  Transmission Date: 20090109
  Serious: Yes (Other)
  Sender: FDA-Public Use
  Company Number: PHHO2008AR01016

PATIENT
  Sex: Male

DRUGS (2)
  1. LDT600 LDT+TAB [Suspect]
     Indication: HEPATITIS B
     Dosage: 600 MG, UNK
     Route: 048
     Dates: start: 20070725, end: 20080108
  2. PEGASYS [Suspect]
     Indication: HEPATITIS B
     Dosage: 180 UG, UNK
     Route: 058
     Dates: start: 20070725, end: 20080108

REACTIONS (3)
  - HYPERAESTHESIA [None]
  - NEUROPATHY PERIPHERAL [None]
  - PARAESTHESIA [None]
